FAERS Safety Report 21471863 (Version 2)
Quarter: 2022Q4

REPORT INFORMATION
  Report Type: Spontaneous
  Country: IR (occurrence: IR)
  Receive Date: 20221018
  Receipt Date: 20221025
  Transmission Date: 20230112
  Serious: Yes (Other)
  Sender: FDA-Public Use
  Company Number: IR-ASTELLAS PHARMA EUROPE B.V.-2022US036148

PATIENT
  Age: 62 Year
  Sex: Male
  Weight: 71 kg

DRUGS (2)
  1. TAMSULOSIN HYDROCHLORIDE [Suspect]
     Active Substance: TAMSULOSIN HYDROCHLORIDE
     Indication: Benign prostatic hyperplasia
     Dosage: 0.4 MG, ONCE DAILY
     Route: 048
     Dates: start: 202207
  2. OPIUM [PAPAVER SOMNIFERUM LATEX] [Concomitant]
     Indication: Product used for unknown indication
     Dosage: UNK UNK, UNKNOWN FREQ.
     Route: 065
     Dates: start: 1999

REACTIONS (1)
  - Periorbital oedema [Recovered/Resolved]

NARRATIVE: CASE EVENT DATE: 20221001
